FAERS Safety Report 25877591 (Version 1)
Quarter: 2025Q4

REPORT INFORMATION
  Report Type: Report from Study
  Country: US (occurrence: US)
  Receive Date: 20251003
  Receipt Date: 20251003
  Transmission Date: 20260118
  Serious: Yes (Hospitalization)
  Sender: ALEXION PHARMACEUTICALS
  Company Number: US-AstraZeneca-CH-00960138A

PATIENT
  Age: 78 Year
  Sex: Female
  Weight: 63.5 kg

DRUGS (17)
  1. ACALABRUTINIB [Suspect]
     Active Substance: ACALABRUTINIB
     Indication: Chronic lymphocytic leukaemia
     Dosage: 100 MILLIGRAM, Q12H
  2. ACETAMINOPHEN [Concomitant]
     Active Substance: ACETAMINOPHEN
  3. ASPIRIN [Concomitant]
     Active Substance: ASPIRIN
  4. ATORVASTATIN [Concomitant]
     Active Substance: ATORVASTATIN
  5. CALCIUM ASCORBATE [Concomitant]
     Active Substance: CALCIUM ASCORBATE
  6. VITAMIN D [Concomitant]
     Active Substance: VITAMIN D NOS
  7. CLOPIDOGREL [Concomitant]
     Active Substance: CLOPIDOGREL BISULFATE
  8. DOXYCYCLINE [Concomitant]
     Active Substance: DOXYCYCLINE
  9. GABAPENTIN [Concomitant]
     Active Substance: GABAPENTIN
  10. UNSPECIFIED INGREDIENT [Concomitant]
     Active Substance: UNSPECIFIED INGREDIENT
  11. LISINOPRIL [Concomitant]
     Active Substance: LISINOPRIL
  12. METOPROLOL SUCCINATE [Concomitant]
     Active Substance: METOPROLOL SUCCINATE
  13. PREDNISONE [Concomitant]
     Active Substance: PREDNISONE
  14. RESTASIS [Concomitant]
     Active Substance: CYCLOSPORINE
  15. SERTRALINE [Concomitant]
     Active Substance: SERTRALINE HYDROCHLORIDE
  16. TEMAZEPAM [Concomitant]
     Active Substance: TEMAZEPAM
  17. PROCHLORPERAZINE [Concomitant]
     Active Substance: PROCHLORPERAZINE

REACTIONS (5)
  - Eructation [Not Recovered/Not Resolved]
  - Gastrooesophageal reflux disease [Not Recovered/Not Resolved]
  - Dyspepsia [Not Recovered/Not Resolved]
  - Cardiac failure congestive [Not Recovered/Not Resolved]
  - Vomiting [Unknown]

NARRATIVE: CASE EVENT DATE: 20250923
